FAERS Safety Report 4662042-0 (Version None)
Quarter: 2005Q2

REPORT INFORMATION
  Report Type: 
  Country: None (occurrence: None)
  Receive Date: 20050512
  Receipt Date: 20050502
  Transmission Date: 20051028
  Serious: Yes (Death)
  Sender: FDA-Public Use
  Company Number: 2005070832

PATIENT
  Age: 58 Year
  Sex: Male
  Weight: 90.7194 kg

DRUGS (3)
  1. BEXTRA [Suspect]
     Indication: ARTHRITIS
     Dosage: 20 MG (10 MG, 2 IN D) ORAL
     Route: 048
     Dates: end: 20050401
  2. ANTIHYPERTENSIVES [Concomitant]
  3. FEXOFENADINE HYDROCHLORIDE [Concomitant]

REACTIONS (1)
  - BLOOD SODIUM DECREASED [None]
